FAERS Safety Report 11840268 (Version 1)
Quarter: 2015Q4

REPORT INFORMATION
  Report Type: Report from Study
  Country: CA (occurrence: CA)
  Receive Date: 20151216
  Receipt Date: 20151216
  Transmission Date: 20160305
  Serious: Yes (Hospitalization, Other)
  Sender: FDA-Public Use
  Company Number: CA-BEH-2015056670

PATIENT
  Sex: Female
  Weight: 70.3 kg

DRUGS (4)
  1. PREDNISONE. [Suspect]
     Active Substance: PREDNISONE
     Indication: MYASTHENIA GRAVIS
  2. HIZENTRA [Suspect]
     Active Substance: HUMAN IMMUNOGLOBULIN G
     Indication: MYASTHENIA GRAVIS
     Dosage: 11 G PER WEEK; PUSH METHOD
     Route: 058
     Dates: start: 20151207
  3. HIZENTRA [Suspect]
     Active Substance: HUMAN IMMUNOGLOBULIN G
     Dates: start: 201406
  4. ACTENOL [Concomitant]
     Indication: OSTEOPOROSIS

REACTIONS (6)
  - Musculoskeletal disorder [Recovered/Resolved]
  - Weight increased [Unknown]
  - Musculoskeletal disorder [Recovered/Resolved]
  - Musculoskeletal disorder [Recovered/Resolved]
  - Musculoskeletal disorder [Unknown]
  - Off label use [Unknown]

NARRATIVE: CASE EVENT DATE: 2015
